FAERS Safety Report 7539312-1 (Version None)
Quarter: 2011Q2

REPORT INFORMATION
  Report Type: 
  Country: None (occurrence: None)
  Receive Date: 20110610
  Receipt Date: 20110526
  Transmission Date: 20111010
  Serious: No
  Sender: FDA-Public Use
  Company Number: US-B.I. PHARMACEUTICALS,INC./RIDGEFIELD-2011-BP-14119BP

PATIENT
  Sex: Male

DRUGS (6)
  1. DILTIAZEM [Concomitant]
     Indication: HYPERTENSION
     Route: 048
  2. ZETIA [Concomitant]
     Indication: BLOOD CHOLESTEROL INCREASED
     Route: 048
  3. WELCHOL [Concomitant]
     Indication: BLOOD CHOLESTEROL INCREASED
     Route: 048
  4. VITAMIN D [Concomitant]
     Indication: PROPHYLAXIS
     Route: 048
  5. FISH OIL [Concomitant]
     Indication: PROPHYLAXIS
     Route: 048
  6. PRADAXA [Suspect]
     Indication: ATRIAL FIBRILLATION
     Dosage: 300 MG
     Route: 048
     Dates: start: 20110401, end: 20110525

REACTIONS (7)
  - DIZZINESS [None]
  - HEADACHE [None]
  - ARTHRALGIA [None]
  - ACTIVATED PARTIAL THROMBOPLASTIN TIME ABNORMAL [None]
  - FATIGUE [None]
  - PROTHROMBIN TIME RATIO ABNORMAL [None]
  - ASTHENIA [None]
